FAERS Safety Report 10779898 (Version 1)
Quarter: 2015Q1

REPORT INFORMATION
  Report Type: Report from Study
  Country: VE (occurrence: VE)
  Receive Date: 20150210
  Receipt Date: 20150210
  Transmission Date: 20150721
  Serious: Yes (Hospitalization)
  Sender: FDA-Public Use
  Company Number: PHHY2015VE015395

PATIENT
  Age: 40 Year
  Sex: Male

DRUGS (1)
  1. ACLASTA [Suspect]
     Active Substance: ZOLEDRONIC ACID
     Indication: OSTEOPOROSIS
     Dosage: 5 ML, ANNUALLY
     Route: 042
     Dates: start: 20120823

REACTIONS (4)
  - Joint injury [Recovering/Resolving]
  - Accident [Unknown]
  - Hypoparathyroidism [Recovering/Resolving]
  - Vitamin D decreased [Recovering/Resolving]

NARRATIVE: CASE EVENT DATE: 20130104
